FAERS Safety Report 11766575 (Version 3)
Quarter: 2017Q1

REPORT INFORMATION
  Report Type: Report from Study
  Country: GB (occurrence: GB)
  Receive Date: 20151123
  Receipt Date: 20170129
  Transmission Date: 20170428
  Serious: Yes (Other)
  Sender: FDA-Public Use
  Company Number: GB-BEH-2015055897

PATIENT
  Age: 74 Year
  Sex: Male
  Weight: 60 kg

DRUGS (2)
  1. RIASTAP [Suspect]
     Active Substance: FIBRINOGEN HUMAN
     Indication: COAGULATION FACTOR DEFICIENCY
     Dosage: FREQUENCY: GIVEN AT VARIABLE RATE INFUSION DURING SURGERY. USED BEFORE EXPIRY
     Route: 042
     Dates: start: 20120221, end: 20120221
  2. RIASTAP [Suspect]
     Active Substance: FIBRINOGEN HUMAN
     Indication: SURGERY

REACTIONS (2)
  - Lower respiratory tract infection [Unknown]
  - Mechanical ventilation [Recovered/Resolved]
